FAERS Safety Report 16369241 (Version 1)
Quarter: 2019Q2

REPORT INFORMATION
  Report Type: Spontaneous
  Country: US (occurrence: US)
  Receive Date: 20190529
  Receipt Date: 20190529
  Transmission Date: 20190711
  Serious: Yes (Other)
  Sender: FDA-Public Use
  Company Number: US-SHIRE-US201916849

PATIENT
  Sex: Female
  Weight: 90.7 kg

DRUGS (1)
  1. HYQVIA [Suspect]
     Active Substance: HUMAN IMMUNOGLOBULIN G\HYALURONIDASE RECOMBINANT HUMAN
     Indication: PRODUCT USED FOR UNKNOWN INDICATION
     Dosage: UNK
     Route: 065

REACTIONS (8)
  - Cellulitis staphylococcal [Unknown]
  - Injection site scar [Unknown]
  - Blood immunoglobulin G decreased [Unknown]
  - Injection site oedema [Unknown]
  - Injection site erythema [Unknown]
  - Injection site irritation [Unknown]
  - Injection site pain [Unknown]
  - Pain [Unknown]
